FAERS Safety Report 9834503 (Version 1)
Quarter: 2014Q1

REPORT INFORMATION
  Report Type: Spontaneous
  Country: US (occurrence: US)
  Receive Date: 20140122
  Receipt Date: 20140122
  Transmission Date: 20141002
  Serious: Yes (Other)
  Sender: FDA-Public Use
  Company Number: US-IAC JAPAN XML-USA-2014-0110404

PATIENT
  Age: 76 Year
  Sex: Female

DRUGS (2)
  1. BUTRANS [Suspect]
     Indication: PAIN
     Dosage: 5 MCG/HR, WEEKLY
     Route: 062
  2. BUTRANS [Suspect]
     Dosage: 10 MCG/HR, UNK
     Route: 062

REACTIONS (13)
  - Breast mass [Unknown]
  - Activities of daily living impaired [Unknown]
  - Viral infection [Unknown]
  - Influenza [Unknown]
  - Pain in extremity [Unknown]
  - Bone pain [Unknown]
  - Eating disorder [Unknown]
  - Breakthrough pain [Unknown]
  - Pain [Unknown]
  - Malaise [Unknown]
  - Decreased appetite [Unknown]
  - Myalgia [Unknown]
  - Blood pressure decreased [Unknown]
